FAERS Safety Report 23093840 (Version 1)
Quarter: 2023Q4

REPORT INFORMATION
  Report Type: Other
  Country: US (occurrence: None)
  Receive Date: 20231023
  Receipt Date: 20231023
  Transmission Date: 20240109
  Serious: Yes (Hospitalization, Other)
  Sender: FDA-Public Use
  Company Number: US-ROCHE-3367562

PATIENT
  Age: 4 Year
  Sex: Male
  Weight: 13.8 kg

DRUGS (14)
  1. EVRYSDI [Suspect]
     Active Substance: RISDIPLAM
     Indication: Spinal muscular atrophy
     Dosage: TAKE 4.5 ML (3.45MG) BY G-TUBE ROUTE
     Dates: start: 20230511, end: 20230803
  2. ATROPINE [Concomitant]
     Active Substance: ATROPINE
     Dosage: PLACE 1 DROP UNDER THE TONGUE IN THE MORNING AND 1 DROP IN EVENING AND 1 DROP BEFORE BEDTIME
     Route: 047
  3. VITAMIN D3 [Concomitant]
     Active Substance: CHOLECALCIFEROL
  4. LOTRIMIN CREAM [Concomitant]
     Route: 061
  5. FLONASE [Concomitant]
     Active Substance: FLUTICASONE PROPIONATE
     Route: 045
     Dates: start: 20230525
  6. FLOVENT HFA [Concomitant]
     Active Substance: FLUTICASONE PROPIONATE
     Dosage: 2 PUFF
     Dates: start: 20230525, end: 20230731
  7. ATROVENT [Concomitant]
     Active Substance: IPRATROPIUM BROMIDE
     Dates: start: 20230526, end: 20230630
  8. PREVACID [Concomitant]
     Active Substance: LANSOPRAZOLE
     Route: 048
     Dates: start: 20230526
  9. SODIUM CHLORIDE [Concomitant]
     Active Substance: SODIUM CHLORIDE
     Dates: start: 20230524
  10. NEBCIN [Concomitant]
     Active Substance: TOBRAMYCIN SULFATE
     Dates: start: 20230524
  11. TYLENOL [Concomitant]
     Active Substance: ACETAMINOPHEN
     Indication: Pain
     Route: 048
  12. AUGMENTIN ES-600 [Concomitant]
     Active Substance: AMOXICILLIN\CLAVULANATE POTASSIUM
  13. XOPENEX [Concomitant]
     Active Substance: LEVALBUTEROL HYDROCHLORIDE
     Dosage: 2 ML
     Dates: start: 20230524
  14. MIRALAX [Concomitant]
     Active Substance: POLYETHYLENE GLYCOL 3350
     Route: 048

REACTIONS (5)
  - Respiratory failure [Unknown]
  - Viral infection [Unknown]
  - Pneumonia bacterial [Unknown]
  - Illness [Unknown]
  - Weight decreased [Unknown]
